FAERS Safety Report 15880553 (Version 1)
Quarter: 2019Q1

REPORT INFORMATION
  Report Type: Spontaneous
  Country: US (occurrence: US)
  Receive Date: 20190128
  Receipt Date: 20190128
  Transmission Date: 20190417
  Serious: No
  Sender: FDA-Public Use
  Company Number: US-TEVA-2019-US-999537

PATIENT
  Sex: Female

DRUGS (1)
  1. ALPRAZOLAM TABLETS TEVA [Suspect]
     Active Substance: ALPRAZOLAM
     Dosage: FORM STRENGTH: 1, UNIT: NOT PROVIDED
     Route: 065
     Dates: start: 2011

REACTIONS (1)
  - Hallucination [Unknown]

NARRATIVE: CASE EVENT DATE: 2011
